FAERS Safety Report 15543859 (Version 1)
Quarter: 2018Q4

REPORT INFORMATION
  Report Type: Report from Study
  Country: US (occurrence: US)
  Receive Date: 20181023
  Receipt Date: 20181023
  Transmission Date: 20190205
  Serious: Yes (Death, Hospitalization)
  Sender: FDA-Public Use
  Company Number: US-TAKEDA-2018TUS024878

PATIENT
  Age: 83 Year
  Sex: Male

DRUGS (1)
  1. PONATINIB [Suspect]
     Active Substance: PONATINIB
     Indication: ACUTE LYMPHOCYTIC LEUKAEMIA
     Dosage: 30 MG, QD
     Route: 048
     Dates: start: 20180725

REACTIONS (3)
  - Bacteraemia [Recovering/Resolving]
  - Death [Fatal]
  - Device related infection [Recovering/Resolving]

NARRATIVE: CASE EVENT DATE: 20180806
